FAERS Safety Report 9263062 (Version 1)
Quarter: 2013Q1

REPORT INFORMATION
  Report Type: Spontaneous
  Country: US (occurrence: None)
  Receive Date: 20121212
  Receipt Date: 20121212
  Transmission Date: 20140127
  Serious: No
  Sender: FDA-Public Use
  Company Number: 1209USA001370

PATIENT
  Age: 46 Year
  Sex: Female

DRUGS (3)
  1. VICTRELIS [Suspect]
     Indication: HEPATITIS C
     Dosage: 800 MG, EVERY 7 HOURS WITH MEALS, ORAL
     Route: 048
     Dates: start: 20120820, end: 20120825
  2. REBETOL [Suspect]
     Indication: HEPATITIS C
  3. PEGASYS ( PEGINTERFERON ALFA-2A) [Concomitant]

REACTIONS (3)
  - Skin disorder [None]
  - Swelling [None]
  - Pruritus [None]
